FAERS Safety Report 16767209 (Version 1)
Quarter: 2019Q4

REPORT INFORMATION
  Report Type: Spontaneous
  Country: US (occurrence: US)
  Receive Date: 20190902
  Receipt Date: 20190902
  Transmission Date: 20200122
  Serious: Yes (Hospitalization)
  Sender: FDA-Public Use
  Company Number: None

PATIENT
  Age: 80 Year
  Sex: Male
  Weight: 90.7 kg

DRUGS (5)
  1. SPIRONOLACTONE 25MG [Concomitant]
     Active Substance: SPIRONOLACTONE
  2. TRANDOLAPRIL 4MG [Concomitant]
  3. VERAPAMIL ER 240MG [Concomitant]
  4. PRAVASTATIN. [Concomitant]
     Active Substance: PRAVASTATIN
  5. PROBENECID. [Suspect]
     Active Substance: PROBENECID
     Indication: GOUT
     Route: 048
     Dates: start: 20190731, end: 20190813

REACTIONS (2)
  - Oral mucosal exfoliation [None]
  - Stevens-Johnson syndrome [None]

NARRATIVE: CASE EVENT DATE: 20190818
